FAERS Safety Report 16918180 (Version 2)
Quarter: 2019Q4

REPORT INFORMATION
  Report Type: Other
  Country: IT (occurrence: IT)
  Receive Date: 20191015
  Receipt Date: 20191216
  Transmission Date: 20200122
  Serious: Yes (Life-Threatening)
  Sender: FDA-Public Use
  Company Number: IT-ACCORD-157633

PATIENT
  Age: 48 Year
  Sex: Female
  Weight: 70 kg

DRUGS (2)
  1. ALLOPURINOL. [Suspect]
     Active Substance: ALLOPURINOL
     Indication: PRODUCT USED FOR UNKNOWN INDICATION
     Dates: start: 20190908, end: 20190925
  2. AZITHROMYCIN ANHYDROUS. [Suspect]
     Active Substance: AZITHROMYCIN ANHYDROUS
     Indication: OROPHARYNGEAL PAIN
     Dates: start: 20190901, end: 20190903

REACTIONS (6)
  - Mucosal inflammation [Unknown]
  - Oropharyngeal pain [Unknown]
  - Conjunctivitis [Unknown]
  - Pyrexia [Unknown]
  - Epidermolysis [Unknown]
  - Blood blister [Unknown]

NARRATIVE: CASE EVENT DATE: 20190925
